FAERS Safety Report 16399616 (Version 1)
Quarter: 2019Q2

REPORT INFORMATION
  Report Type: Spontaneous
  Country: FR (occurrence: FR)
  Receive Date: 20190606
  Receipt Date: 20190606
  Transmission Date: 20190711
  Serious: Yes (Other)
  Sender: FDA-Public Use
  Company Number: FR-TEVA-2019-FR-1058250

PATIENT
  Age: 56 Year
  Sex: Female
  Weight: 36 kg

DRUGS (2)
  1. LEXOMIL 12 MG, COMPRIM? [Concomitant]
     Active Substance: BROMAZEPAM
     Indication: DEPRESSION
     Dosage: 1 DOSAGE FORMS DAILY;
     Route: 048
     Dates: start: 1992
  2. FLUOXETINE TEVA 20 MG, G?LULE [Suspect]
     Active Substance: FLUOXETINE HYDROCHLORIDE
     Indication: DEPRESSION
     Dosage: 20 MILLIGRAM DAILY;
     Route: 048
     Dates: start: 2010, end: 201904

REACTIONS (9)
  - Choking [Not Recovered/Not Resolved]
  - Migraine [Recovering/Resolving]
  - Sinus disorder [Recovering/Resolving]
  - Pain in jaw [Recovering/Resolving]
  - Dyskinesia [Recovering/Resolving]
  - Facial neuralgia [Recovering/Resolving]
  - Insomnia [Recovering/Resolving]
  - Weight decreased [Recovering/Resolving]
  - Fatigue [Recovering/Resolving]

NARRATIVE: CASE EVENT DATE: 2018
